FAERS Safety Report 20869665 (Version 2)
Quarter: 2024Q3

REPORT INFORMATION
  Report Type: Spontaneous
  Country: DE (occurrence: DE)
  Receive Date: 20220525
  Receipt Date: 20240711
  Transmission Date: 20241017
  Serious: No
  Sender: ASTELLAS
  Company Number: DE-ASTELLAS-2022US018804

PATIENT
  Sex: Male

DRUGS (1)
  1. XTANDI [Suspect]
     Active Substance: ENZALUTAMIDE
     Indication: Product used for unknown indication
     Dosage: UNK UNK, UNKNOWN FREQ.
     Route: 065

REACTIONS (2)
  - General physical health deterioration [Unknown]
  - Fatigue [Unknown]
